FAERS Safety Report 4924593-0 (Version None)
Quarter: 2006Q1

REPORT INFORMATION
  Report Type: 
  Country: None (occurrence: None)
  Receive Date: 20060222
  Receipt Date: 20060206
  Transmission Date: 20060701
  Serious: Yes (Hospitalization)
  Sender: FDA-Public Use
  Company Number: 2006VX000007

PATIENT
  Age: 74 Year
  Sex: Female
  Weight: 42 kg

DRUGS (7)
  1. MESTINON [Suspect]
     Indication: NEUROMYELITIS OPTICA
     Dosage: 120 MG; QD; PO
     Route: 048
  2. TEGRETOL [Suspect]
     Indication: NEUROMYELITIS OPTICA
     Dosage: 600 MG; QD; PO
     Route: 048
  3. BACLOFEN [Suspect]
     Indication: NEUROMYELITIS OPTICA
     Dosage: 40 MG; QD; PO
     Route: 048
  4. TEGRETOL [Concomitant]
  5. BACLOFEN [Concomitant]
  6. NEURONTIN [Concomitant]
  7. DURAGESIC-100 [Concomitant]

REACTIONS (4)
  - CONDITION AGGRAVATED [None]
  - NEUROMYELITIS OPTICA [None]
  - PYREXIA [None]
  - THERAPY NON-RESPONDER [None]
